FAERS Safety Report 8031464-2 (Version None)
Quarter: 2011Q4

REPORT INFORMATION
  Report Type: 
  Country: None (occurrence: None)
  Receive Date: 20111201
  Receipt Date: 20110307
  Transmission Date: 20120403
  Serious: Yes (Hospitalization, Other)
  Sender: FDA-Public Use
  Company Number: 268461USA

PATIENT
  Age: 67 Year
  Sex: Male

DRUGS (3)
  1. TIOPRONIN [Concomitant]
  2. AMOXICILLIN AND CLAVULANATE POTASSIUM [Suspect]
     Indication: SINUSITIS
     Dosage: 3500 MG (875 MG, 4 IN 1 D)
     Dates: start: 20110125, end: 20110201
  3. BUDESONIDE W/FORMOTEROL FUMARATE [Concomitant]

REACTIONS (6)
  - HEPATITIS [None]
  - BLOOD BILIRUBIN INCREASED [None]
  - CHROMATURIA [None]
  - PRURITUS [None]
  - RASH [None]
  - VOMITING [None]
